FAERS Safety Report 25076384 (Version 1)
Quarter: 2025Q1

REPORT INFORMATION
  Report Type: Spontaneous
  Country: CL (occurrence: CL)
  Receive Date: 20250313
  Receipt Date: 20250313
  Transmission Date: 20250409
  Serious: Yes (Congenital Anomaly)
  Sender: JUBILANT
  Company Number: CL-JUBILANT CADISTA PHARMACEUTICALS-2025JUB00026

PATIENT
  Age: 4 Year
  Sex: Female

DRUGS (3)
  1. LAMOTRIGINE [Suspect]
     Active Substance: LAMOTRIGINE
     Dosage: 500 MG, 1X/DAY, BEFORE AND DURING PREGNANCY
  2. LEVETIRACETAM [Suspect]
     Active Substance: LEVETIRACETAM
     Dosage: 2500 MG, 1X/DAY, BEFORE AND DURING PREGNANCY
  3. CLOBAZAM [Suspect]
     Active Substance: CLOBAZAM
     Dosage: 10 MG, 1X/DAY, AT WEEK 26 OF GESTATION

REACTIONS (2)
  - Anorectal malformation [Recovering/Resolving]
  - Foetal exposure during pregnancy [Recovered/Resolved]
